FAERS Safety Report 8578413-6 (Version None)
Quarter: 2012Q3

REPORT INFORMATION
  Report Type: 
  Country: None (occurrence: None)
  Receive Date: 20120808
  Receipt Date: 20120727
  Transmission Date: 20120928
  Serious: Yes (Hospitalization)
  Sender: FDA-Public Use
  Company Number: US-CELGENEUS-163-21880-12052158

PATIENT
  Sex: Male

DRUGS (37)
  1. LIDODERM [Concomitant]
     Indication: PAIN
     Route: 062
  2. DEXAMETHASONE [Concomitant]
     Dosage: 20 MILLIGRAM
     Route: 065
  3. ALLOPURINOL [Concomitant]
     Route: 065
  4. SIMVASTATIN [Concomitant]
     Route: 065
  5. DUONEB [Concomitant]
     Route: 065
  6. CARVEDILOL [Concomitant]
     Indication: HYPERTENSION
     Dosage: 50 MILLIGRAM
     Route: 065
  7. FLAGYL [Concomitant]
     Route: 041
  8. DECADRON PHOSPHATE [Concomitant]
     Dosage: 20 MILLIGRAM
     Route: 065
  9. MS CONTIN [Concomitant]
     Indication: PAIN
     Dosage: 15 MILLIGRAM
     Route: 065
  10. PLATELETS [Concomitant]
     Indication: TRANSFUSION
     Route: 041
     Dates: start: 20120401
  11. PROTONIX [Concomitant]
     Dosage: 40 MILLIGRAM
     Route: 065
  12. AMBIEN [Concomitant]
     Dosage: 10 MILLIGRAM
     Route: 065
  13. SENNA S [Concomitant]
     Indication: CONSTIPATION
     Dosage: 2
     Route: 065
  14. LACTINEX [Concomitant]
     Indication: SUPPLEMENTATION THERAPY
     Dosage: 6 TABLET
     Route: 048
  15. COREG [Concomitant]
     Indication: HYPERTENSION
     Dosage: 50 MILLIGRAM
     Route: 065
  16. ZOCOR [Concomitant]
     Indication: BLOOD CHOLESTEROL INCREASED
     Dosage: 40 MILLIGRAM
     Route: 065
  17. REVLIMID [Suspect]
     Dosage: 25 MILLIGRAM
     Route: 048
     Dates: start: 20120101
  18. REVLIMID [Suspect]
     Dosage: 15 MILLIGRAM
     Route: 048
     Dates: start: 20120101, end: 20120716
  19. ZOFRAN [Concomitant]
     Indication: NAUSEA
     Dosage: 8 MILLIGRAM
     Route: 065
  20. ATIVAN [Concomitant]
     Dosage: .5 MILLIGRAM
     Route: 065
  21. REVLIMID [Suspect]
     Indication: MULTIPLE MYELOMA
     Dosage: 25 MILLIGRAM
     Route: 048
     Dates: start: 20120323
  22. BISACODYL [Concomitant]
     Indication: CONSTIPATION
     Dosage: 10 MILLIGRAM
     Route: 065
  23. ACYCLOVIR [Concomitant]
     Indication: PROPHYLAXIS
     Dosage: 800 MILLIGRAM
     Route: 065
  24. MORPHINE SULFATE [Concomitant]
     Indication: PAIN
     Dosage: 15 MILLIGRAM
     Route: 065
  25. CIPROFLOXACIN [Concomitant]
     Route: 041
  26. LORAZEPAM [Concomitant]
     Route: 065
  27. LACTULOSE [Concomitant]
     Indication: CONSTIPATION
     Route: 065
  28. ZOMETA [Concomitant]
     Route: 065
  29. VITAMIN D [Concomitant]
     Dosage: 1200 MILLIGRAM
     Route: 065
  30. IMODIUM A-D [Concomitant]
     Dosage: 1
     Route: 065
  31. OMEPRAZOLE [Concomitant]
     Dosage: 20 MILLIGRAM
     Route: 065
  32. LEXAPRO [Concomitant]
     Indication: DEPRESSION
     Dosage: 20 MILLIGRAM
     Route: 065
  33. DIOVAN [Concomitant]
     Route: 065
  34. ASPIRIN [Concomitant]
     Indication: SUPPLEMENTATION THERAPY
     Dosage: 81 MILLIGRAM
     Route: 065
  35. VELCADE [Concomitant]
     Dosage: 1 MILLIGRAM/SQ. METER
     Route: 065
  36. TYLENOL [Concomitant]
     Indication: PAIN
     Dosage: 650 MILLIGRAM
     Route: 065
  37. KAOPECTATE [Concomitant]
     Indication: SUPPLEMENTATION THERAPY
     Route: 065

REACTIONS (9)
  - GASTROINTESTINAL HAEMORRHAGE [None]
  - THROMBOCYTOPENIA [None]
  - ASTHENIA [None]
  - ANAEMIA [None]
  - PRURITUS [None]
  - ENTEROCOLITIS [None]
  - RENAL FAILURE [None]
  - DIARRHOEA [None]
  - HAEMATURIA [None]
